FAERS Safety Report 4590562-6 (Version None)
Quarter: 2005Q1

REPORT INFORMATION
  Report Type: 
  Country: None (occurrence: None)
  Receive Date: 20050224
  Receipt Date: 20050215
  Transmission Date: 20050727
  Serious: Yes (Hospitalization, Other)
  Sender: FDA-Public Use
  Company Number: US-GLAXOSMITHKLINE-A0545710A

PATIENT
  Sex: Female

DRUGS (1)
  1. LAMICTAL [Suspect]
     Route: 065
     Dates: start: 20041201, end: 20041201

REACTIONS (4)
  - BALANCE DISORDER [None]
  - DIZZINESS [None]
  - NAUSEA [None]
  - VERTIGO [None]
